FAERS Safety Report 8460084-0 (Version None)
Quarter: 2012Q2

REPORT INFORMATION
  Report Type: 
  Country: None (occurrence: None)
  Receive Date: 20120622
  Receipt Date: 20120611
  Transmission Date: 20120825
  Serious: Yes (Other)
  Sender: FDA-Public Use
  Company Number: JP-BRISTOL-MYERS SQUIBB COMPANY-14848634

PATIENT
  Age: 14 Year
  Sex: Male

DRUGS (5)
  1. CISPLATIN [Suspect]
     Indication: BONE SARCOMA
     Route: 041
  2. METHOTREXATE [Suspect]
  3. IFOSFAMIDE [Suspect]
     Indication: BONE SARCOMA
     Dosage: INJ.2,6 COURSES.
     Route: 042
  4. DOXORUBICIN HCL [Suspect]
     Indication: BONE SARCOMA
     Route: 042
  5. ETOPOSIDE [Suspect]
     Indication: BONE SARCOMA
     Dosage: 2,6 COURSES

REACTIONS (4)
  - OESOPHAGEAL STENOSIS [None]
  - VOMITING [None]
  - HEARING IMPAIRED [None]
  - NAUSEA [None]
